FAERS Safety Report 8566117-5 (Version None)
Quarter: 2012Q3

REPORT INFORMATION
  Report Type: 
  Country: None (occurrence: None)
  Receive Date: 20120803
  Receipt Date: 20111227
  Transmission Date: 20120928
  Serious: No
  Sender: FDA-Public Use
  Company Number: US-ABBOTT-11P-163-0886619-00

PATIENT
  Sex: Female
  Weight: 58.112 kg

DRUGS (7)
  1. CELEXA [Concomitant]
     Indication: INSOMNIA
  2. FISH OIL [Concomitant]
     Indication: PRODUCT USED FOR UNKNOWN INDICATION
  3. VITAMIN D [Concomitant]
     Indication: OSTEOPENIA
  4. NIASPAN [Suspect]
     Indication: BLOOD CHOLESTEROL
  5. RESTASIS [Concomitant]
     Indication: DRY EYE
  6. CALCIUM [Concomitant]
     Indication: PRODUCT USED FOR UNKNOWN INDICATION
  7. M.V.I. [Concomitant]
     Indication: PRODUCT USED FOR UNKNOWN INDICATION

REACTIONS (2)
  - PRURITUS [None]
  - ERYTHEMA [None]
